FAERS Safety Report 21710126 (Version 1)
Quarter: 2022Q4

REPORT INFORMATION
  Report Type: Spontaneous
  Country: US (occurrence: US)
  Receive Date: 20221211
  Receipt Date: 20221211
  Transmission Date: 20230113
  Serious: Yes (Other)
  Sender: FDA-Public Use
  Company Number: US-NALPROPION PHARMACEUTICALS INC.-US-2022CUR023993

PATIENT
  Sex: Female

DRUGS (1)
  1. CONTRAVE [Suspect]
     Active Substance: BUPROPION HYDROCHLORIDE\NALTREXONE HYDROCHLORIDE
     Indication: Product used for unknown indication
     Dosage: STRENGTH: 8/90MG, UNKNOWN DOSE AND FREQUENCY
     Route: 065

REACTIONS (6)
  - Suicidal ideation [Unknown]
  - Muscle spasms [Unknown]
  - Paraesthesia [Unknown]
  - Hyperhidrosis [Unknown]
  - Flushing [Unknown]
  - Vomiting [Recovered/Resolved]
